FAERS Safety Report 14859451 (Version 1)
Quarter: 2018Q2

REPORT INFORMATION
  Report Type: Spontaneous
  Country: FR (occurrence: FR)
  Receive Date: 20180508
  Receipt Date: 20180508
  Transmission Date: 20180711
  Serious: Yes (Hospitalization)
  Sender: FDA-Public Use
  Company Number: FR-MERCK KGAA-2047388

PATIENT
  Age: 53 Year
  Sex: Female

DRUGS (3)
  1. NOVOTHYROX [Suspect]
     Active Substance: LEVOTHYROXINE SODIUM
     Indication: HYPOTHYROIDISM
     Dates: start: 2017
  2. NOVOTHYROX [Suspect]
     Active Substance: LEVOTHYROXINE SODIUM
  3. NOVOTHYROX [Suspect]
     Active Substance: LEVOTHYROXINE SODIUM

REACTIONS (25)
  - Cholestasis [Recovering/Resolving]
  - Fatigue [Recovering/Resolving]
  - Social avoidant behaviour [Recovering/Resolving]
  - Depression [Recovering/Resolving]
  - Abdominal pain [Recovering/Resolving]
  - Abdominal pain upper [Recovering/Resolving]
  - Depressed mood [Recovering/Resolving]
  - Tearfulness [Recovering/Resolving]
  - Apathy [Recovering/Resolving]
  - Mood swings [Recovering/Resolving]
  - Cell death [Recovering/Resolving]
  - Somnolence [Recovering/Resolving]
  - Pain [Recovering/Resolving]
  - Dysstasia [Recovering/Resolving]
  - Blood thyroid stimulating hormone increased [None]
  - Arthralgia [Recovering/Resolving]
  - Impaired driving ability [Recovering/Resolving]
  - Irritability [Recovering/Resolving]
  - Mood altered [Recovering/Resolving]
  - Gait disturbance [Recovering/Resolving]
  - Blood thyroid stimulating hormone decreased [None]
  - Intestinal transit time increased [Recovering/Resolving]
  - Loss of personal independence in daily activities [Recovering/Resolving]
  - Headache [Recovering/Resolving]
  - Nausea [Recovering/Resolving]

NARRATIVE: CASE EVENT DATE: 201706
